FAERS Safety Report 6713419-0 (Version None)
Quarter: 2010Q2

REPORT INFORMATION
  Report Type: 
  Country: None (occurrence: None)
  Receive Date: 20100506
  Receipt Date: 20100429
  Transmission Date: 20101027
  Serious: Yes (Death, Other)
  Sender: FDA-Public Use
  Company Number: US-WYE-H03987408

PATIENT
  Sex: Female

DRUGS (5)
  1. CONJUGATED ESTROGENS [Suspect]
  2. FEMHRT [Suspect]
  3. CONJUGATED ESTROGENS [Suspect]
  4. MEDROXYPROGESTERONE ACETATE [Suspect]
  5. MEDROXYPROGESTERONE ACETATE [Suspect]

REACTIONS (1)
  - BREAST CANCER METASTATIC [None]
